FAERS Safety Report 10011046 (Version 1)
Quarter: 2014Q1

REPORT INFORMATION
  Report Type: Spontaneous
  Country: US (occurrence: US)
  Receive Date: 20140314
  Receipt Date: 20140314
  Transmission Date: 20141002
  Serious: Yes (Hospitalization)
  Sender: FDA-Public Use
  Company Number: US-BAYER-2014-037689

PATIENT
  Age: 36 Year
  Sex: Female
  Weight: 107.48 kg

DRUGS (7)
  1. YAZ [Suspect]
  2. CELEXA [Concomitant]
     Dosage: 20 MG, QD
     Dates: start: 20030825
  3. MICRONOR [Concomitant]
  4. ANCEF [Concomitant]
     Dosage: 1 G, UNK
     Route: 042
     Dates: start: 20030826, end: 20030827
  5. MORFINE [Concomitant]
     Dosage: UNK
     Dates: start: 20030826, end: 20030828
  6. LEVAQUIN [Concomitant]
     Dosage: 500 MG, UNK
     Dates: start: 20030902
  7. PERCOCET [Concomitant]
     Indication: PAIN

REACTIONS (2)
  - Deep vein thrombosis [None]
  - Pulmonary embolism [None]
